FAERS Safety Report 12663969 (Version 1)
Quarter: 2016Q3

REPORT INFORMATION
  Report Type: Report from Study
  Country: KR (occurrence: KR)
  Receive Date: 20160818
  Receipt Date: 20160818
  Transmission Date: 20161109
  Serious: Yes (Other)
  Sender: FDA-Public Use
  Company Number: KR-JNJFOC-20160516837

PATIENT
  Age: 5 Decade
  Sex: Female

DRUGS (5)
  1. STABLON [Concomitant]
     Active Substance: TIANEPTINE
     Indication: DEPRESSION
     Route: 048
  2. INVEGA [Suspect]
     Active Substance: PALIPERIDONE
     Indication: SCHIZOPHRENIA
     Route: 048
  3. INVEGA SUSTENNA [Suspect]
     Active Substance: PALIPERIDONE PALMITATE
     Indication: SCHIZOPHRENIA
     Route: 030
     Dates: start: 2015
  4. DEPAKOTE [Concomitant]
     Active Substance: DIVALPROEX SODIUM
     Route: 048
  5. VITAMINE [Concomitant]
     Indication: NUTRITIONAL SUPPLEMENTATION
     Route: 048

REACTIONS (9)
  - Anaemia [Not Recovered/Not Resolved]
  - Hallucination, tactile [Recovered/Resolved]
  - Weight increased [Not Recovered/Not Resolved]
  - Menstruation irregular [Recovered/Resolved]
  - Gingival abscess [Not Recovered/Not Resolved]
  - Hormone level abnormal [Not Recovered/Not Resolved]
  - Dizziness [Recovered/Resolved]
  - Headache [Recovering/Resolving]
  - Tremor [Recovering/Resolving]
